FAERS Safety Report 25084093 (Version 4)
Quarter: 2025Q3

REPORT INFORMATION
  Report Type: Spontaneous
  Country: US (occurrence: US)
  Receive Date: 20250317
  Receipt Date: 20250916
  Transmission Date: 20251021
  Serious: Yes (Hospitalization, Other)
  Sender: SANOFI AVENTIS
  Company Number: US-SA-2025SA075731

PATIENT
  Age: 65 Year
  Sex: Male
  Weight: 97.1 kg

DRUGS (24)
  1. DUPIXENT [Suspect]
     Active Substance: DUPILUMAB
     Indication: Dermatitis atopic
     Dosage: 300 MG, QOW
     Route: 058
  2. ALLEGRA ALLERGY [Concomitant]
     Active Substance: FEXOFENADINE HYDROCHLORIDE
     Dosage: 1 DF, QD
  3. ASPIRIN [Concomitant]
     Active Substance: ASPIRIN
     Dosage: 1 DF, QD
     Route: 048
  4. CLOBETASOL PROPIONATE [Concomitant]
     Active Substance: CLOBETASOL PROPIONATE
  5. EMGALITY [Concomitant]
     Active Substance: GALCANEZUMAB-GNLM
     Route: 058
     Dates: start: 20250821, end: 20250821
  6. LASIX [Concomitant]
     Active Substance: FUROSEMIDE
     Dosage: 1 DF, QD
     Route: 048
  7. GLUCOTROL XL [Concomitant]
     Active Substance: GLIPIZIDE
     Dosage: 1 DF, QD
     Route: 048
     Dates: start: 20221115
  8. KLOR-CON [Concomitant]
     Active Substance: POTASSIUM CHLORIDE
     Dosage: 1 DF, QD, 8 MEQ CR TABLET
     Route: 048
     Dates: start: 20221031
  9. COZAAR [Concomitant]
     Active Substance: LOSARTAN POTASSIUM
     Dosage: 1 DF, QD
     Route: 048
  10. GLUCOPHAGE XR [Concomitant]
     Active Substance: METFORMIN HYDROCHLORIDE
     Dosage: 1 DG, BID
     Route: 048
  11. NURTEC ODT [Concomitant]
     Active Substance: RIMEGEPANT SULFATE
     Route: 060
     Dates: start: 20241211, end: 20250821
  12. OZEMPIC [Concomitant]
     Active Substance: SEMAGLUTIDE
     Dosage: 0.25 OR 0.5 MG/DOSE, 2 MG/3ML SOLUTION, INJECT 0,25 MG UNDER THE SKIN INTO THE APPROPRIATE AREA AS D
     Route: 058
     Dates: start: 20240327
  13. CRESTOR [Concomitant]
     Active Substance: ROSUVASTATIN CALCIUM
     Dosage: 1 DF, HS
     Route: 048
     Dates: start: 20250713
  14. TESTOSTERONE CYPIONATE [Concomitant]
     Active Substance: TESTOSTERONE CYPIONATE
     Dosage: 200 MG, QOW
     Dates: start: 20250718
  15. TRIAMCINOLONE ACETONIDE [Concomitant]
     Active Substance: TRIAMCINOLONE ACETONIDE
  16. TYLENOL [Concomitant]
     Active Substance: ACETAMINOPHEN
     Indication: Pain
     Route: 048
  17. VIAGRA [Concomitant]
     Active Substance: SILDENAFIL CITRATE
  18. ALLEGRA [Concomitant]
     Active Substance: FEXOFENADINE HYDROCHLORIDE
     Dosage: 1 DF, QD
     Route: 048
  19. NICODERM CQ [Concomitant]
     Active Substance: NICOTINE
     Dosage: 1 DF, QD
     Route: 062
     Dates: start: 20250708
  20. IMDUR [Concomitant]
     Active Substance: ISOSORBIDE MONONITRATE
     Dosage: 30.000MG QD
     Route: 048
     Dates: start: 20250716
  21. COREG [Concomitant]
     Active Substance: CARVEDILOL
     Dosage: 0.500DF BID, WITH MEALS
     Route: 048
     Dates: start: 20250801
  22. XARELTO [Concomitant]
     Active Substance: RIVAROXABAN
     Indication: Arteriosclerosis
     Dosage: 2.500MG BID
     Route: 048
     Dates: start: 20250813, end: 20250912
  23. BRILINTA [Concomitant]
     Active Substance: TICAGRELOR
     Dosage: 90 MG, BID
     Route: 048
     Dates: start: 20250708
  24. NORVASC [Concomitant]
     Active Substance: AMLODIPINE BESYLATE
     Dosage: 1 DF, QD
     Route: 048
     Dates: start: 20250814, end: 20250913

REACTIONS (7)
  - Acute myocardial infarction [Recovered/Resolved]
  - Chest pain [Recovered/Resolved]
  - Troponin increased [Unknown]
  - Myocardial infarction [Unknown]
  - Blood glucose increased [Unknown]
  - Blood creatinine decreased [Unknown]
  - Injection site bruising [Unknown]

NARRATIVE: CASE EVENT DATE: 20250706
